FAERS Safety Report 12365819 (Version 2)
Quarter: 2016Q2

REPORT INFORMATION
  Report Type: Spontaneous
  Country: US (occurrence: US)
  Receive Date: 20160513
  Receipt Date: 20160603
  Transmission Date: 20160815
  Serious: Yes (Other)
  Sender: FDA-Public Use
  Company Number: PHHY2016US064810

PATIENT
  Age: 53 Year
  Sex: Female

DRUGS (1)
  1. ZOLEDRONATE [Suspect]
     Active Substance: ZOLEDRONIC ACID
     Indication: LUNG ADENOCARCINOMA METASTATIC
     Route: 042

REACTIONS (5)
  - Periorbital oedema [Recovered/Resolved]
  - Eye pain [Recovered/Resolved]
  - Extraocular muscle disorder [Recovered/Resolved]
  - Eye disorder [Recovered/Resolved]
  - Erythema [Recovered/Resolved]
